FAERS Safety Report 13710961 (Version 2)
Quarter: 2017Q3

REPORT INFORMATION
  Report Type: Spontaneous
  Country: US (occurrence: US)
  Receive Date: 20170703
  Receipt Date: 20170905
  Transmission Date: 20171127
  Serious: Yes (Hospitalization)
  Sender: FDA-Public Use
  Company Number: US-ASTRAZENECA-2017SE66745

PATIENT
  Age: 65 Year
  Sex: Female
  Weight: 74.4 kg

DRUGS (2)
  1. SYMBICORT [Suspect]
     Active Substance: BUDESONIDE\FORMOTEROL FUMARATE DIHYDRATE
     Indication: CHRONIC OBSTRUCTIVE PULMONARY DISEASE
     Dosage: 160/4.5 UG 2 PUFFS TWICE DAILY
     Route: 055
     Dates: start: 2016
  2. SIMVASTATIN. [Concomitant]
     Active Substance: SIMVASTATIN

REACTIONS (6)
  - Migraine [Unknown]
  - Off label use [Unknown]
  - Product quality issue [Unknown]
  - Pneumonia [Unknown]
  - Overweight [Unknown]
  - Device difficult to use [Unknown]

NARRATIVE: CASE EVENT DATE: 2017
